FAERS Safety Report 5824283-6 (Version None)
Quarter: 2008Q3

REPORT INFORMATION
  Report Type: 
  Country: None (occurrence: None)
  Receive Date: 20080728
  Receipt Date: 20080718
  Transmission Date: 20090109
  Serious: Yes (Hospitalization)
  Sender: FDA-Public Use
  Company Number: FR-ROCHE-576717

PATIENT
  Age: 51 Year
  Sex: Male

DRUGS (9)
  1. CLONAZEPAM [Suspect]
     Indication: EPILEPSY
     Route: 065
  2. CLONAZEPAM [Suspect]
     Route: 065
  3. LYRICA [Suspect]
     Indication: EPILEPSY
     Route: 065
  4. LYRICA [Suspect]
     Route: 065
  5. TEGRETOL [Suspect]
     Indication: EPILEPSY
     Dosage: DRUG: TEGRETOL LP 200, STRENGTH: LP 200
     Route: 048
  6. TEGRETOL [Suspect]
     Dosage: DRUG: TEGRETOL LP 400, STRENGTH: LP 400
     Route: 048
  7. TEGRETOL [Suspect]
     Dosage: DRUG: TEGRETOL LP 200, STRENGTH: LP 200
     Route: 048
  8. TEGRETOL [Suspect]
     Dosage: DRUG: TEGRETOL LP 400, STRENGTH: LP 400
     Route: 048
  9. DOLIPRANE [Concomitant]
     Indication: EPILEPSY

REACTIONS (3)
  - DELIRIUM [None]
  - DISSOCIATIVE FUGUE [None]
  - EPILEPSY [None]
